FAERS Safety Report 14971774 (Version 2)
Quarter: 2018Q3

REPORT INFORMATION
  Report Type: Spontaneous
  Country: GB (occurrence: GB)
  Receive Date: 20180605
  Receipt Date: 20180810
  Transmission Date: 20181010
  Serious: Yes (Hospitalization, Other)
  Sender: FDA-Public Use
  Company Number: GB-ROCHE-2129495

PATIENT
  Age: 18 Year
  Sex: Female
  Weight: 70 kg

DRUGS (4)
  1. COBIMETINIB. [Suspect]
     Active Substance: COBIMETINIB
     Indication: PRODUCT USED FOR UNKNOWN INDICATION
     Route: 048
  2. HYDROCORTISONE. [Concomitant]
     Active Substance: HYDROCORTISONE
     Indication: HYPOPITUITARISM
     Dosage: STOP DATE: FOR YEARS
     Route: 048
  3. DDAVP [Concomitant]
     Active Substance: DESMOPRESSIN ACETATE
     Indication: HYPOPITUITARISM
     Dosage: DOSE: 50MCG?STOP DATE: 1 YEAR
     Route: 048
  4. THYROXINE [Concomitant]
     Active Substance: LEVOTHYROXINE
     Indication: HYPOPITUITARISM
     Dosage: DOSE: 100 MCG?YEARS
     Route: 048

REACTIONS (4)
  - Retinal detachment [Unknown]
  - Hypotension [Recovered/Resolved]
  - Retinal disorder [Recovering/Resolving]
  - Hyponatraemia [Recovered/Resolved]

NARRATIVE: CASE EVENT DATE: 20180518
